FAERS Safety Report 4932424-8 (Version None)
Quarter: 2006Q1

REPORT INFORMATION
  Report Type: 
  Country: None (occurrence: None)
  Receive Date: 20060301
  Receipt Date: 20060217
  Transmission Date: 20060701
  Serious: Yes (Hospitalization, Other)
  Sender: FDA-Public Use
  Company Number: 2006009146

PATIENT
  Age: 56 Year
  Sex: Male
  Weight: 120 kg

DRUGS (1)
  1. SOMAVERT [Suspect]
     Indication: ACROMEGALY
     Dosage: 30 MG (1 IN 1 D), SUBCUTANEOUS
     Route: 058
     Dates: start: 20040615, end: 20060110

REACTIONS (6)
  - DRUG EFFECT DECREASED [None]
  - HEADACHE [None]
  - PITUITARY INFARCTION [None]
  - PITUITARY TUMOUR BENIGN [None]
  - VISUAL PATHWAY DISORDER [None]
  - WEIGHT INCREASED [None]
